FAERS Safety Report 6959083-7 (Version None)
Quarter: 2010Q3

REPORT INFORMATION
  Report Type: 
  Country: None (occurrence: None)
  Receive Date: 20100831
  Receipt Date: 20100823
  Transmission Date: 20110219
  Serious: Yes (Death, Hospitalization)
  Sender: FDA-Public Use
  Company Number: NL-TEVA-246414ISR

PATIENT
  Sex: Female
  Weight: 84 kg

DRUGS (15)
  1. FLUOROURACIL [Suspect]
     Indication: BREAST CANCER
     Route: 042
     Dates: start: 20100218, end: 20100401
  2. LETROZOLE [Suspect]
  3. DOXORUBICIN HCL [Suspect]
     Indication: BREAST CANCER
     Route: 042
     Dates: start: 20100218, end: 20100401
  4. CYCLOPHOSPHAMIDE [Suspect]
     Indication: BREAST CANCER
     Route: 042
     Dates: start: 20100218, end: 20100401
  5. RANITIDINE [Concomitant]
  6. AMIODARONE [Concomitant]
  7. ACENOCOUMAROL [Concomitant]
  8. METOPROLOL TARTRATE [Concomitant]
  9. ROSUVASTATIN [Concomitant]
     Dates: end: 20100423
  10. FERROUS FUMARATE [Concomitant]
  11. IMIPRAMINE [Concomitant]
  12. FLUTICASONE PROPIONATE [Concomitant]
  13. TEMAZEPAM [Concomitant]
  14. RAMIPRIL [Concomitant]
  15. MONTELUKAST SODIUM [Concomitant]

REACTIONS (4)
  - CARDIAC ARREST [None]
  - CARDIAC INFECTION [None]
  - PNEUMONIA [None]
  - RESPIRATORY FAILURE [None]
